FAERS Safety Report 7464640-8 (Version None)
Quarter: 2011Q2

REPORT INFORMATION
  Report Type: 
  Country: None (occurrence: None)
  Receive Date: 20110509
  Receipt Date: 20110323
  Transmission Date: 20111010
  Serious: Yes (Other)
  Sender: FDA-Public Use
  Company Number: US-BAYER-2011-017178

PATIENT
  Age: 21 Year
  Sex: Female
  Weight: 95 kg

DRUGS (4)
  1. YASMIN [Suspect]
     Dosage: UNK
     Dates: start: 20050101, end: 20060101
  2. YAZ [Suspect]
     Dosage: UNK
     Dates: start: 20050101, end: 20060101
  3. YASMIN [Suspect]
     Indication: PRODUCT USED FOR UNKNOWN INDICATION
     Dosage: UNK
     Dates: start: 20000101, end: 20040101
  4. YAZ [Suspect]
     Indication: PRODUCT USED FOR UNKNOWN INDICATION
     Dosage: UNK
     Dates: start: 20000101, end: 20040101

REACTIONS (6)
  - VOMITING [None]
  - CHOLELITHIASIS [None]
  - NAUSEA [None]
  - DIARRHOEA [None]
  - PAIN [None]
  - ABDOMINAL PAIN UPPER [None]
